FAERS Safety Report 23246023 (Version 1)
Quarter: 2023Q4

REPORT INFORMATION
  Report Type: Spontaneous
  Country: US (occurrence: US)
  Receive Date: 20231130
  Receipt Date: 20231130
  Transmission Date: 20240110
  Serious: No
  Sender: FDA-Public Use
  Company Number: US-ALVOGEN-2023091268

PATIENT
  Age: 68 Year
  Sex: Female

DRUGS (3)
  1. TERIPARATIDE [Suspect]
     Active Substance: TERIPARATIDE
     Indication: Osteoporosis
     Dosage: AFTER THE FIRST YEAR OF BEING ON FORTEO, THEN SWITCHED TO THE GENERIC (ALVOGEN)
     Dates: start: 202201
  2. TERIPARATIDE [Suspect]
     Active Substance: TERIPARATIDE
     Indication: Osteoporosis
     Dosage: EXPIRATION DATE: UU-JUN-2024?STRENGTH: 20 MCG (0.08ML)
     Route: 058
     Dates: end: 202304
  3. TERIPARATIDE [Suspect]
     Active Substance: TERIPARATIDE
     Indication: Osteoporosis
     Dosage: EXPIRATION DATE: UU-JUL-2024
     Dates: start: 202307, end: 202307

REACTIONS (5)
  - Device malfunction [Unknown]
  - Device operational issue [Unknown]
  - Device breakage [Unknown]
  - Product use issue [Unknown]
  - Product dose omission issue [Unknown]

NARRATIVE: CASE EVENT DATE: 20230402
